FAERS Safety Report 8759488 (Version 2)
Quarter: 2013Q4

REPORT INFORMATION
  Report Type: Spontaneous
  Country: GB (occurrence: GB)
  Receive Date: 20120829
  Receipt Date: 20131108
  Transmission Date: 20140711
  Serious: Yes (Hospitalization, Other)
  Sender: FDA-Public Use
  Company Number: GB-MERCK SHARP + DOHME-1206USA05503

PATIENT
  Age: 54 Year
  Sex: Male
  Weight: 86 kg

DRUGS (12)
  1. MK-9350 [Concomitant]
  2. QUININE SULFATE [Concomitant]
  3. TILDIEM LA [Concomitant]
  4. ZOCOR [Suspect]
     Indication: BLOOD CHOLESTEROL INCREASED
     Dosage: 40 MG, UNK
     Route: 048
     Dates: start: 20120515, end: 20120515
  5. ZOCOR [Suspect]
     Indication: BLOOD TRIGLYCERIDES INCREASED
  6. ACYCLOVIR [Concomitant]
  7. CYCLOSPORINE [Concomitant]
  8. TRIMOXAZOLE [Concomitant]
  9. ITRACONAZOLE [Concomitant]
  10. MYCOPHENOLATE MOFETIL [Concomitant]
  11. PRILOSEC [Concomitant]
  12. PENICILLIN V [Concomitant]

REACTIONS (4)
  - Chromaturia [Unknown]
  - Hypokinesia [Unknown]
  - Myalgia [Unknown]
  - Rhabdomyolysis [Recovering/Resolving]
